FAERS Safety Report 9893532 (Version 1)
Quarter: 2014Q1

REPORT INFORMATION
  Report Type: Report from Study
  Country: IN (occurrence: IN)
  Receive Date: 20140213
  Receipt Date: 20140213
  Transmission Date: 20141002
  Serious: Yes (Death)
  Sender: FDA-Public Use
  Company Number: IN-SA-2014SA012294

PATIENT
  Age: 65 Year
  Sex: Male

DRUGS (1)
  1. TAXOTERE [Suspect]
     Indication: PROSTATE CANCER
     Route: 042
     Dates: start: 20130923, end: 20131205

REACTIONS (3)
  - Prostatic specific antigen increased [Fatal]
  - Hypotension [Fatal]
  - Haemoglobin decreased [Fatal]
